FAERS Safety Report 21126184 (Version 2)
Quarter: 2022Q3

REPORT INFORMATION
  Report Type: Spontaneous
  Country: US (occurrence: US)
  Receive Date: 20220725
  Receipt Date: 20220802
  Transmission Date: 20221027
  Serious: Yes (Other)
  Sender: FDA-Public Use
  Company Number: US-ELI_LILLY_AND_COMPANY-US202207005079

PATIENT
  Sex: Male

DRUGS (1)
  1. HUMALOG MIX75/25 [Suspect]
     Active Substance: INSULIN LISPRO
     Indication: Type 2 diabetes mellitus
     Dosage: UNK UNK, PRN
     Route: 058

REACTIONS (7)
  - Blindness [Unknown]
  - Eye infarction [Unknown]
  - Intraocular pressure increased [Not Recovered/Not Resolved]
  - Cataract [Unknown]
  - Optic nerve disorder [Unknown]
  - Ankle fracture [Not Recovered/Not Resolved]
  - Gait disturbance [Not Recovered/Not Resolved]
